FAERS Safety Report 24715612 (Version 2)
Quarter: 2024Q4

REPORT INFORMATION
  Report Type: Spontaneous
  Country: FR (occurrence: FR)
  Receive Date: 20241210
  Receipt Date: 20241227
  Transmission Date: 20250114
  Serious: Yes (Other)
  Sender: RANBAXY
  Company Number: FR-SUN PHARMACEUTICAL INDUSTRIES LTD-2024R1-483465

PATIENT
  Sex: Female

DRUGS (3)
  1. OCTREOTIDE [Suspect]
     Active Substance: OCTREOTIDE
     Indication: Albright^s disease
     Dosage: UNK
     Route: 065
  2. LANREOTIDE [Suspect]
     Active Substance: LANREOTIDE
     Indication: Albright^s disease
     Dosage: UNK
     Route: 065
  3. PEGVISOMANT [Suspect]
     Active Substance: PEGVISOMANT
     Indication: Albright^s disease
     Dosage: 15 MILLIGRAM, DAILY
     Route: 065

REACTIONS (3)
  - Drug resistance [Unknown]
  - Drug intolerance [Unknown]
  - Diarrhoea [Unknown]
